FAERS Safety Report 7497832 (Version 9)
Quarter: 2012Q4

REPORT INFORMATION
  Report Type: 
  Country: US (occurrence: US)
  Receive Date: 20100723
  Receipt Date: 20121106
  Transmission Date: 20130627
  Serious: Yes (Hospitalization)
  Sender: FDA-Public Use
  Company Number: US-BIOGENIDEC-2010BI024203

PATIENT
  Age: 71 Year
  Sex: Female
  Weight: 45 kg

DRUGS (3)
  1. AVONEX [Suspect]
     Indication: MULTIPLE SCLEROSIS
     Route: 030
     Dates: start: 19981201
  2. AVONEX [Suspect]
     Indication: MULTIPLE SCLEROSIS
     Route: 030
  3. SYNTHROID [Concomitant]
     Indication: THYROID DISORDER

REACTIONS (20)
  - Spinal fracture [Not Recovered/Not Resolved]
  - Road traffic accident [Recovered/Resolved]
  - Localised infection [Unknown]
  - Hypertension [Not Recovered/Not Resolved]
  - Weight decreased [Not Recovered/Not Resolved]
  - Skin discolouration [Recovered/Resolved]
  - Contusion [Recovered/Resolved]
  - Drug ineffective [Unknown]
  - Fall [Recovered/Resolved]
  - Laceration [Unknown]
  - Aphasia [Recovered/Resolved]
  - Lumbar spinal stenosis [Not Recovered/Not Resolved]
  - Multiple sclerosis [Not Recovered/Not Resolved]
  - Oedema peripheral [Not Recovered/Not Resolved]
  - Decreased appetite [Recovered/Resolved]
  - Musculoskeletal pain [Not Recovered/Not Resolved]
  - Pain in extremity [Not Recovered/Not Resolved]
  - Depression [Not Recovered/Not Resolved]
  - Anxiety [Not Recovered/Not Resolved]
  - Feeling abnormal [Not Recovered/Not Resolved]
